FAERS Safety Report 9357356 (Version 2)
Quarter: 2013Q2

REPORT INFORMATION
  Report Type: Spontaneous
  Country: US (occurrence: US)
  Receive Date: 20130620
  Receipt Date: 20130620
  Transmission Date: 20140414
  Serious: No
  Sender: FDA-Public Use
  Company Number: US-MYLANLABS-2013S1005189

PATIENT
  Age: 81 Year
  Sex: Female
  Weight: 88.91 kg

DRUGS (3)
  1. GLIPIZIDE [Suspect]
     Indication: DIABETES MELLITUS
     Dates: end: 20130304
  2. GLUCOPHAGE [Concomitant]
     Indication: DIABETES MELLITUS
     Route: 048
  3. CARDIZEM [Concomitant]
     Indication: HYPERTENSION
     Route: 048

REACTIONS (1)
  - Vision blurred [Recovered/Resolved]
